FAERS Safety Report 5101293-8 (Version None)
Quarter: 2006Q3

REPORT INFORMATION
  Report Type: 
  Country: None (occurrence: None)
  Receive Date: 20060906
  Receipt Date: 20060821
  Transmission Date: 20061208
  Serious: Yes (Hospitalization)
  Sender: FDA-Public Use
  Company Number: 230058M06GBR

PATIENT
  Age: 36 Year
  Sex: Female
  Weight: 60 kg

DRUGS (9)
  1. REBIF [Suspect]
     Dosage: 22, 3 IN 1 WEEKS, SUBCUTANEOUS
     Route: 058
     Dates: start: 20040101
  2. DANTROLENE SODIUM [Concomitant]
  3. GABAPENTIN [Concomitant]
  4. FLUOXETINE HYDROCHLORIDE [Concomitant]
  5. DIDRONEL [Concomitant]
  6. CLOPIDOGREL [Concomitant]
  7. BACLOFEN [Concomitant]
  8. TRIMETHOPRIM [Concomitant]
  9. SIMVASTATIN [Concomitant]

REACTIONS (2)
  - ARTERIAL DISORDER [None]
  - MYOCARDIAL INFARCTION [None]
